FAERS Safety Report 6875786-7 (Version None)
Quarter: 2010Q3

REPORT INFORMATION
  Report Type: 
  Country: None (occurrence: None)
  Receive Date: 20100727
  Receipt Date: 20070917
  Transmission Date: 20110219
  Serious: Yes (Death, Other)
  Sender: FDA-Public Use
  Company Number: US-PFIZER INC-2006150059

PATIENT
  Sex: Female

DRUGS (6)
  1. CELEBREX [Suspect]
     Indication: PAIN
     Dosage: ONCE OR TWICE
     Route: 048
     Dates: start: 20000327, end: 20050113
  2. VIOXX [Suspect]
     Indication: PAIN
     Route: 048
     Dates: start: 20020904, end: 20040930
  3. ZESTORETIC [Concomitant]
     Dates: start: 19990101, end: 20050114
  4. TOPROL-XL [Concomitant]
     Dates: start: 19990101, end: 20050114
  5. DILACOR XR [Concomitant]
     Dates: start: 19990101, end: 20050114
  6. DILTIAZEM [Concomitant]
     Dates: start: 19990101, end: 20050114

REACTIONS (2)
  - CEREBROVASCULAR ACCIDENT [None]
  - MYOCARDIAL INFARCTION [None]
